FAERS Safety Report 8389279-1 (Version None)
Quarter: 2012Q2

REPORT INFORMATION
  Report Type: 
  Country: None (occurrence: None)
  Receive Date: 20120528
  Receipt Date: 20120516
  Transmission Date: 20120825
  Serious: Yes (Other)
  Sender: FDA-Public Use
  Company Number: MX-BRISTOL-MYERS SQUIBB COMPANY-16602336

PATIENT
  Age: 36 Year
  Sex: Male
  Weight: 140 kg

DRUGS (4)
  1. DI-ISOPROPYLAMMONIUM DICHLOROACETATE+CALCIUM GLUCONATE [Concomitant]
     Indication: VENOUS INSUFFICIENCY
     Dosage: 1DF=1TAB
     Route: 048
     Dates: start: 20080101
  2. DAFLON [Concomitant]
     Indication: VENOUS INSUFFICIENCY
     Dosage: 1DF=1 TAB
     Route: 048
     Dates: start: 20080101
  3. METFORMIN HCL [Suspect]
     Indication: TYPE 2 DIABETES MELLITUS
     Dosage: 1DF=1TAB
     Route: 048
     Dates: start: 20100101, end: 20120510
  4. IRBESARTAN [Suspect]
     Indication: HYPERTENSION
     Dosage: 1DF=1TAB
     Route: 048
     Dates: start: 20100101

REACTIONS (3)
  - HYPERGLYCAEMIA [None]
  - WEIGHT DECREASED [None]
  - HYPERTENSION [None]
